FAERS Safety Report 9432162 (Version 1)
Quarter: 2013Q3

REPORT INFORMATION
  Report Type: Spontaneous
  Country: US (occurrence: US)
  Receive Date: 20130731
  Receipt Date: 20130731
  Transmission Date: 20140515
  Serious: No
  Sender: FDA-Public Use
  Company Number: US-PFIZER INC-2013221630

PATIENT
  Sex: Female

DRUGS (4)
  1. NEURONTIN [Suspect]
     Indication: PAIN
     Dosage: UNK
  2. NEURONTIN [Suspect]
     Indication: PAIN
  3. GABAPENTIN [Suspect]
     Indication: PAIN
     Dosage: UNK
  4. GABAPENTIN [Suspect]
     Indication: PAIN

REACTIONS (2)
  - Bursitis [Unknown]
  - Drug ineffective [Unknown]
